FAERS Safety Report 4465867-X (Version None)
Quarter: 2004Q4

REPORT INFORMATION
  Report Type: 
  Country: None (occurrence: None)
  Receive Date: 20041001
  Receipt Date: 20041001
  Transmission Date: 20050328
  Serious: No
  Sender: FDA-Public Use
  Company Number: None

PATIENT
  Age: 70 Year
  Sex: Male
  Weight: 96.2 kg

DRUGS (12)
  1. ALLOPURINOL [Suspect]
     Indication: GOUT
     Dosage: 300 MG EVERY DAY ORAL
     Route: 048
     Dates: start: 20040623, end: 20040728
  2. ATORVASTATIN CALCIUM [Suspect]
     Indication: HYPERCHOLESTEROLAEMIA
     Dosage: 20 MG QHS ORAL
     Route: 048
     Dates: start: 20040624, end: 20040806
  3. DONEPEZIL HCL [Concomitant]
  4. CLOPIDOGREL [Concomitant]
  5. VALPROIC ACID [Concomitant]
  6. APAP TAB [Concomitant]
  7. HALOPERIDOL [Concomitant]
  8. LORAZEPAM [Concomitant]
  9. ALUMINUM HYDROXIDE AND MAGNESIUM TRISILICATE [Concomitant]
  10. MILK OF MAG [Concomitant]
  11. VALSARTAN [Concomitant]
  12. OLANZAPINE [Concomitant]

REACTIONS (2)
  - ALANINE AMINOTRANSFERASE INCREASED [None]
  - ASPARTATE AMINOTRANSFERASE INCREASED [None]
